FAERS Safety Report 9566136 (Version 1)
Quarter: 2013Q3

REPORT INFORMATION
  Report Type: Spontaneous
  Country: US (occurrence: US)
  Receive Date: 20130930
  Receipt Date: 20130930
  Transmission Date: 20140515
  Serious: Yes (Other)
  Sender: FDA-Public Use
  Company Number: CHPA2013US014682

PATIENT
  Age: 56 Year
  Sex: Female

DRUGS (2)
  1. OTRIVIN COLD + ALLERGY MEASURED DOSE PUMP [Suspect]
     Indication: OFF LABEL USE
     Dosage: UNK, ONCE EVERY 3 DAYS OR 3-4 TIMES A DAY
     Route: 045
  2. OTRIVIN COLD + ALLERGY MEASURED DOSE PUMP [Suspect]
     Indication: NASAL CONGESTION

REACTIONS (4)
  - Chronic sinusitis [Unknown]
  - Disease recurrence [Unknown]
  - Therapeutic response unexpected [Unknown]
  - Incorrect dose administered [Unknown]
